FAERS Safety Report 14574481 (Version 1)
Quarter: 2018Q1

REPORT INFORMATION
  Report Type: Spontaneous
  Country: US (occurrence: US)
  Receive Date: 20180224
  Receipt Date: 20180224
  Transmission Date: 20180509
  Serious: Yes (Other)
  Sender: FDA-Public Use
  Company Number: None

PATIENT
  Age: 3 Year
  Sex: Male
  Weight: 18.9 kg

DRUGS (2)
  1. TAMIFLU [Suspect]
     Active Substance: OSELTAMIVIR PHOSPHATE
     Indication: INFLUENZA
     Dosage: QUANTITY:1.5 TEASPOON(S);?
     Route: 048
     Dates: start: 20180221, end: 20180222
  2. IBUPROFEN. [Concomitant]
     Active Substance: IBUPROFEN

REACTIONS (5)
  - Seizure [None]
  - Aggression [None]
  - Abnormal behaviour [None]
  - Memory impairment [None]
  - Sleep terror [None]

NARRATIVE: CASE EVENT DATE: 20180221
